FAERS Safety Report 6072091-6 (Version None)
Quarter: 2009Q1

REPORT INFORMATION
  Report Type: 
  Country: None (occurrence: None)
  Receive Date: 20090210
  Receipt Date: 20090202
  Transmission Date: 20090719
  Serious: Yes (Other)
  Sender: FDA-Public Use
  Company Number: US-ASTRAZENECA-2009UW03042

PATIENT
  Age: 59 Year
  Sex: Female
  Weight: 80.7 kg

DRUGS (8)
  1. SEROQUEL [Suspect]
     Indication: BIPOLAR DISORDER
     Dosage: 100 MG IN AM, 900 MG IN AFTERNOON, AND 100 MG AT NIGHT
     Route: 048
     Dates: start: 20050101
  2. SEROQUEL [Suspect]
     Indication: OBSESSIVE-COMPULSIVE DISORDER
     Dosage: 100 MG IN AM, 900 MG IN AFTERNOON, AND 100 MG AT NIGHT
     Route: 048
     Dates: start: 20050101
  3. LITHIUM CARBONATE [Concomitant]
  4. CLONOPIN [Concomitant]
  5. SYNTHROID [Concomitant]
  6. DIOVAN [Concomitant]
  7. ALLEGRA [Concomitant]
  8. AVANDIA [Concomitant]
     Indication: DIABETES MELLITUS

REACTIONS (4)
  - CHEST PAIN [None]
  - MYOCARDIAL INFARCTION [None]
  - UTERINE CANCER [None]
  - WEIGHT INCREASED [None]
